FAERS Safety Report 11754125 (Version 1)
Quarter: 2015Q4

REPORT INFORMATION
  Report Type: Spontaneous
  Country: US (occurrence: None)
  Receive Date: 20151118
  Receipt Date: 20151118
  Transmission Date: 20160304
  Serious: No
  Sender: FDA-Public Use
  Company Number: None

PATIENT
  Age: 69 Year
  Sex: Female
  Weight: 73.94 kg

DRUGS (17)
  1. MICARDIS [Concomitant]
     Active Substance: TELMISARTAN
  2. CLARITIN [Concomitant]
     Active Substance: LORATADINE
  3. PROAIR INHALER [Concomitant]
  4. EPIPEN [Concomitant]
     Active Substance: EPINEPHRINE
  5. BILBERRY [Concomitant]
     Active Substance: BILBERRY
  6. FISH OIL [Concomitant]
     Active Substance: FISH OIL
  7. VITAMIN B COMPLEX [Concomitant]
     Active Substance: CYANOCOBALAMIN\DEXPANTHENOL\NIACINAMIDE\PYRIDOXINE HYDROCHLORIDE\RIBOFLAVIN 5^-PHOSPHATE SODIUM\THIAMINE HYDROCHLORIDE\VITAMIN B COMPLEX
  8. COENZYME Q10 [Concomitant]
     Active Substance: UBIDECARENONE
  9. MULTIVITAMIN [Concomitant]
     Active Substance: VITAMINS
  10. ESTER C [Concomitant]
  11. GARLIC. [Concomitant]
     Active Substance: GARLIC
  12. GRAPE SEED [Concomitant]
  13. PRAVASTATIN [Concomitant]
     Active Substance: PRAVASTATIN\PRAVASTATIN SODIUM
  14. MONTELUKAST [Concomitant]
     Active Substance: MONTELUKAST SODIUM
  15. PROBIOTICS [Concomitant]
     Active Substance: PROBIOTICS NOS
  16. VITAMIN D3 [Suspect]
     Active Substance: CHOLECALCIFEROL
     Indication: VITAMIN D DECREASED
     Route: 048
     Dates: start: 20150801, end: 20150915
  17. SYNTHROID [Concomitant]
     Active Substance: LEVOTHYROXINE SODIUM

REACTIONS (3)
  - Wrong drug administered [None]
  - Product label issue [None]
  - Product packaging issue [None]

NARRATIVE: CASE EVENT DATE: 20150915
